FAERS Safety Report 25255828 (Version 2)
Quarter: 2025Q2

REPORT INFORMATION
  Report Type: Spontaneous
  Country: US (occurrence: US)
  Receive Date: 20250430
  Receipt Date: 20250522
  Transmission Date: 20250717
  Serious: No
  Sender: Kenvue
  Company Number: US-KENVUE-20250406549

PATIENT
  Age: 59 Year
  Sex: Male

DRUGS (13)
  1. TYLENOL [Suspect]
     Active Substance: ACETAMINOPHEN
     Indication: Headache
     Route: 065
     Dates: start: 202503
  2. TYLENOL [Suspect]
     Active Substance: ACETAMINOPHEN
     Route: 065
     Dates: start: 2024
  3. ORENITRAM [Concomitant]
     Active Substance: TREPROSTINIL
     Indication: Pulmonary arterial hypertension
     Dosage: 1.375 MILLIGRAM, THRICE A DAY
     Route: 048
     Dates: start: 2024, end: 2024
  4. ORENITRAM [Concomitant]
     Active Substance: TREPROSTINIL
     Dosage: 1.625 MILLIGRAM, THRICE A DAY (1 TABLET OF 1 MG AND 0.125 MG EACH AND 2 TABLETS OF 0.25 MG)
     Route: 048
     Dates: start: 2024, end: 2024
  5. ORENITRAM [Concomitant]
     Active Substance: TREPROSTINIL
     Dosage: 1.75 MILLIGRAM, THRICE A DAY (1 TABLET OF 1 MG AND 3 TABLETS OF 0.25 MG)
     Route: 048
     Dates: start: 2024
  6. ORENITRAM [Concomitant]
     Active Substance: TREPROSTINIL
     Dosage: 2 MILLIGRAM, THRICE A DAY
     Route: 048
     Dates: end: 202501
  7. ORENITRAM [Concomitant]
     Active Substance: TREPROSTINIL
     Dosage: 2.25 MILLIGRAM, THRICE A DAY (1 TABLET OF 0.25 MG AND 2 TABLETS OF 1 MG)
     Route: 048
     Dates: start: 202501
  8. ORENITRAM [Concomitant]
     Active Substance: TREPROSTINIL
     Dosage: 2.5 MILLIGRAM, THRICE A DAY
     Route: 048
     Dates: end: 202502
  9. ORENITRAM [Concomitant]
     Active Substance: TREPROSTINIL
     Dosage: 2.375 MILLIGRAM, THRICE A DAY (1 TABLET OF 0.125 MG AND 0.25 MG EACH AND 2 TABLETS OF 1 MG)
     Route: 048
     Dates: start: 202502, end: 202503
  10. ORENITRAM [Concomitant]
     Active Substance: TREPROSTINIL
     Dosage: 2.5 MILLIGRAM, THRICE A DAY (2 TABLETS OF 1 MG AND 0.25 MG EACH)
     Route: 048
     Dates: start: 202503
  11. ORENITRAM [Concomitant]
     Active Substance: TREPROSTINIL
     Route: 048
     Dates: start: 202409
  12. OPSUMIT [Concomitant]
     Active Substance: MACITENTAN
     Indication: Product used for unknown indication
     Route: 065
  13. ADEMPAS [Concomitant]
     Active Substance: RIOCIGUAT
     Indication: Product used for unknown indication
     Route: 065

REACTIONS (1)
  - Drug ineffective [Unknown]

NARRATIVE: CASE EVENT DATE: 20250301
